FAERS Safety Report 7018066-1 (Version None)
Quarter: 2010Q3

REPORT INFORMATION
  Report Type: 
  Country: None (occurrence: None)
  Receive Date: 20100928
  Receipt Date: 20100921
  Transmission Date: 20110219
  Serious: Yes (Hospitalization, Other)
  Sender: FDA-Public Use
  Company Number: PHFR2010IE03033

PATIENT
  Sex: Male

DRUGS (9)
  1. CLOZARIL [Suspect]
     Indication: SCHIZOPHRENIA
     Dosage: 300 MG, BID
     Route: 048
     Dates: start: 19950801, end: 20100911
  2. CLOZARIL [Suspect]
     Dosage: 600 MG, QD (VIA NG TUBE)
  3. VALPROATE SODIUM [Concomitant]
     Dosage: 700 MG, TID
  4. PROCYCLIDINE HYDROCHLORIDE 2MG TAB [Concomitant]
     Dosage: 5 MG, BID
  5. OMEPRAZOLE [Concomitant]
     Dosage: 20 MG, UNK
  6. LACTULOSE [Concomitant]
     Dosage: 10 MG, TID
  7. CHLORPROMAZINE [Concomitant]
     Dosage: 100 MG, QD
  8. SPIRIVA [Concomitant]
  9. PROPRANOLOL [Concomitant]
     Dosage: 20 MG, BID

REACTIONS (8)
  - CARDIAC ARREST [None]
  - COLON NEOPLASM [None]
  - COMA [None]
  - DRUG DOSE OMISSION [None]
  - INTESTINAL OBSTRUCTION [None]
  - INTESTINAL PERFORATION [None]
  - LOSS OF CONSCIOUSNESS [None]
  - WRONG TECHNIQUE IN DRUG USAGE PROCESS [None]
